FAERS Safety Report 4375080-2 (Version None)
Quarter: 2004Q2

REPORT INFORMATION
  Report Type: 
  Country: None (occurrence: None)
  Receive Date: 20040603
  Receipt Date: 20040520
  Transmission Date: 20050107
  Serious: Yes (Hospitalization)
  Sender: FDA-Public Use
  Company Number: 2004AP02840

PATIENT
  Age: 50 Year
  Sex: Male

DRUGS (1)
  1. IRESSA [Suspect]
     Indication: NON-SMALL CELL LUNG CANCER
     Dosage: 250 MG DAILY PO
     Route: 048
     Dates: start: 20040507, end: 20040511

REACTIONS (4)
  - ALANINE AMINOTRANSFERASE INCREASED [None]
  - ASPARTATE AMINOTRANSFERASE INCREASED [None]
  - INTERSTITIAL LUNG DISEASE [None]
  - PYREXIA [None]
